FAERS Safety Report 15985242 (Version 5)
Quarter: 2020Q1

REPORT INFORMATION
  Report Type: Spontaneous
  Country: US (occurrence: US)
  Receive Date: 20190220
  Receipt Date: 20200327
  Transmission Date: 20200409
  Serious: No
  Sender: FDA-Public Use
  Company Number: US-BRISTOL-MYERS SQUIBB COMPANY-BMS-2019-017907

PATIENT
  Age: 63 Year
  Sex: Female
  Weight: 45.35 kg

DRUGS (2)
  1. ORENCIA [Suspect]
     Active Substance: ABATACEPT
     Indication: RHEUMATOID ARTHRITIS
     Dosage: 87.5 MILLIGRAM
     Route: 058
     Dates: start: 201809
  2. ORENCIA [Suspect]
     Active Substance: ABATACEPT
     Indication: RHEUMATOID ARTHRITIS
     Dosage: 87.5 MILLIGRAM, QWK
     Route: 058

REACTIONS (9)
  - Erythema [Unknown]
  - Malaise [Unknown]
  - Ear swelling [Unknown]
  - Dizziness [Unknown]
  - Infection [Unknown]
  - Gastrointestinal infection [Unknown]
  - Throat irritation [Unknown]
  - Product storage error [Unknown]
  - Intentional product use issue [Unknown]

NARRATIVE: CASE EVENT DATE: 20190907
